FAERS Safety Report 24356810 (Version 1)
Quarter: 2024Q3

REPORT INFORMATION
  Report Type: Spontaneous
  Country: GB (occurrence: GB)
  Receive Date: 20240924
  Receipt Date: 20240924
  Transmission Date: 20241017
  Serious: Yes (Other)
  Sender: B BRAUN
  Company Number: GB-B.Braun Medical Inc.-2161940

PATIENT
  Age: 66 Year
  Sex: Female
  Weight: 98 kg

DRUGS (7)
  1. METRONIDAZOLE [Suspect]
     Active Substance: METRONIDAZOLE
  2. GABAPENTIN [Concomitant]
     Active Substance: GABAPENTIN
  3. ETORICOXIB [Concomitant]
     Active Substance: ETORICOXIB
  4. ALBUTEROL [Concomitant]
     Active Substance: ALBUTEROL
  5. BECLOMETHASONE\FORMOTEROL [Concomitant]
     Active Substance: BECLOMETHASONE\FORMOTEROL
  6. LISINOPRIL [Concomitant]
     Active Substance: LISINOPRIL
  7. INDAPAMIDE [Concomitant]
     Active Substance: INDAPAMIDE

REACTIONS (4)
  - Nausea [Unknown]
  - Off label use [Unknown]
  - Dyspnoea [Unknown]
  - Dizziness [Unknown]
